FAERS Safety Report 18262408 (Version 1)
Quarter: 2020Q3

REPORT INFORMATION
  Report Type: Spontaneous
  Country: US (occurrence: US)
  Receive Date: 20200912
  Receipt Date: 20200912
  Transmission Date: 20201103
  Serious: Yes (Death)
  Sender: FDA-Public Use
  Company Number: None

PATIENT
  Age: 57 Year
  Sex: Male
  Weight: 71.2 kg

DRUGS (1)
  1. YESCARTA [Suspect]
     Active Substance: AXICABTAGENE CILOLEUCEL
     Indication: DIFFUSE LARGE B-CELL LYMPHOMA
     Dosage: ?          OTHER DOSE:MAX (2 X 10^8);OTHER ROUTE:IV?
     Dates: start: 20200807, end: 20200807

REACTIONS (10)
  - Blood lactate dehydrogenase increased [None]
  - Dysphagia [None]
  - Aspiration [None]
  - Pancytopenia [None]
  - Mental status changes [None]
  - Lactic acidosis [None]
  - Febrile neutropenia [None]
  - Serum ferritin increased [None]
  - Disease progression [None]
  - Haemophagocytic lymphohistiocytosis [None]

NARRATIVE: CASE EVENT DATE: 20200817
